FAERS Safety Report 18302947 (Version 1)
Quarter: 2020Q3

REPORT INFORMATION
  Report Type: Spontaneous
  Country: ES (occurrence: ES)
  Receive Date: 20200924
  Receipt Date: 20200924
  Transmission Date: 20201103
  Serious: Yes (Hospitalization, Disabling, Congenital Anomaly, Other)
  Sender: FDA-Public Use
  Company Number: ES-ABBVIE-16P-144-1654561-00

PATIENT
  Sex: Female

DRUGS (1)
  1. DEPAKINE CHRONO [Suspect]
     Active Substance: VALPROATE SODIUM
     Indication: PRODUCT USED FOR UNKNOWN INDICATION
     Route: 064
     Dates: start: 200401, end: 20040809

REACTIONS (49)
  - Arteriovenous fistula [Unknown]
  - Frenulum breve [Unknown]
  - Lip disorder [Unknown]
  - Hypotonia [Unknown]
  - Haematoma [Unknown]
  - Pachygyria [Unknown]
  - Astigmatism [Unknown]
  - Live birth [Unknown]
  - Exposure during pregnancy [Unknown]
  - Hypertelorism of orbit [Unknown]
  - Dysmorphism [Unknown]
  - Respiratory acidosis [Unknown]
  - Cognitive disorder [Unknown]
  - Finger deformity [Unknown]
  - Tonsillar disorder [Unknown]
  - Craniosynostosis [Unknown]
  - Blepharophimosis [Unknown]
  - Ear deformity acquired [Unknown]
  - Lissencephaly [Unknown]
  - Scoliosis [Unknown]
  - Mental disability [Unknown]
  - Microphthalmos [Unknown]
  - Personality change due to a general medical condition [Unknown]
  - Autism spectrum disorder [Unknown]
  - Bradycardia [Unknown]
  - Craniofacial deformity [Unknown]
  - Head deformity [Unknown]
  - Generalised tonic-clonic seizure [Unknown]
  - Syringomyelia [Unknown]
  - Obsessive-compulsive disorder [Unknown]
  - Unevaluable event [Unknown]
  - Bone loss [Unknown]
  - Pulmonary hypertension [Unknown]
  - Decreased activity [Unknown]
  - Myopia [Unknown]
  - Sleep apnoea syndrome [Unknown]
  - Impaired self-care [Unknown]
  - Oppositional defiant disorder [Unknown]
  - Anger [Unknown]
  - Cardiomyopathy [Unknown]
  - Inguinal hernia [Unknown]
  - Congenital anomaly [Unknown]
  - Nose deformity [Unknown]
  - High arched palate [Unknown]
  - Cryptorchism [Unknown]
  - Clinodactyly [Unknown]
  - Loss of personal independence in daily activities [Unknown]
  - Behaviour disorder [Unknown]
  - General physical condition abnormal [Unknown]
